FAERS Safety Report 9302657 (Version 1)
Quarter: 2013Q2

REPORT INFORMATION
  Report Type: Spontaneous
  Country: CN (occurrence: CN)
  Receive Date: 20130522
  Receipt Date: 20130522
  Transmission Date: 20140414
  Serious: No
  Sender: FDA-Public Use
  Company Number: CN-JNJFOC-20130511718

PATIENT
  Age: 1 Day
  Sex: Female

DRUGS (1)
  1. DUROGESIC D-TRANS [Suspect]
     Indication: PROCEDURAL PAIN
     Dosage: 1 PATCH
     Route: 062
     Dates: start: 20120214, end: 20120215

REACTIONS (5)
  - Nausea [Recovered/Resolved]
  - Vomiting [Recovering/Resolving]
  - Off label use [Unknown]
  - Off label use [Unknown]
  - Inappropriate schedule of drug administration [Unknown]
